FAERS Safety Report 6523717-1 (Version None)
Quarter: 2009Q4

REPORT INFORMATION
  Report Type: 
  Country: None (occurrence: None)
  Receive Date: 20091231
  Receipt Date: 20091228
  Transmission Date: 20100525
  Serious: Yes (Hospitalization)
  Sender: FDA-Public Use
  Company Number: US-BAYER-200941774NA

PATIENT
  Age: 72 Year
  Sex: Female

DRUGS (1)
  1. CLIMARA [Suspect]
     Indication: HOT FLUSH
     Dosage: PATCHES RELEASE 0.1MG/DAY / NEW PATCH EVERY WEEK.
     Route: 062
     Dates: start: 19940713, end: 20090723

REACTIONS (1)
  - BREAST CANCER FEMALE [None]
